FAERS Safety Report 15849463 (Version 6)
Quarter: 2021Q4

REPORT INFORMATION
  Report Type: Report from Study
  Country: FR (occurrence: FR)
  Receive Date: 20190121
  Receipt Date: 20211208
  Transmission Date: 20220303
  Serious: Yes (Hospitalization)
  Sender: FDA-Public Use
  Company Number: FR-BOEHRINGERINGELHEIM-2019-BI-001866

PATIENT
  Age: 67 Year
  Sex: Female
  Weight: 53 kg

DRUGS (8)
  1. NINTEDANIB [Suspect]
     Active Substance: NINTEDANIB
     Indication: Endometrial cancer
     Route: 048
     Dates: start: 20181101, end: 20190111
  2. NINTEDANIB [Suspect]
     Active Substance: NINTEDANIB
     Route: 048
     Dates: start: 20190117, end: 20190120
  3. NINTEDANIB [Suspect]
     Active Substance: NINTEDANIB
     Route: 048
     Dates: start: 20190125
  4. CARBOPLATIN [Concomitant]
     Active Substance: CARBOPLATIN
     Indication: Endometrial cancer
     Dosage: DAILY DOSE: 1320
     Route: 042
     Dates: start: 20181031, end: 20181214
  5. CARBOPLATIN [Concomitant]
     Active Substance: CARBOPLATIN
     Dosage: DAILY DOSE: 460MG
     Route: 042
     Dates: start: 20190116
  6. CRESTOR [Concomitant]
     Active Substance: ROSUVASTATIN CALCIUM
     Indication: Hypercholesterolaemia
     Route: 048
  7. LEVOTHYROXINE [Concomitant]
     Active Substance: LEVOTHYROXINE
     Indication: Hypothyroidism
     Route: 048
  8. PACLITAXEL [Concomitant]
     Active Substance: PACLITAXEL
     Indication: Endometrial cancer
     Dosage: DAILY DOSE: 552
     Route: 042
     Dates: start: 20181031, end: 20181123

REACTIONS (2)
  - Haematemesis [Recovered/Resolved]
  - Vomiting [Recovered/Resolved]

NARRATIVE: CASE EVENT DATE: 20190113
